FAERS Safety Report 18383483 (Version 1)
Quarter: 2020Q4

REPORT INFORMATION
  Report Type: Spontaneous
  Country: US (occurrence: US)
  Receive Date: 20201014
  Receipt Date: 20201014
  Transmission Date: 20210114
  Serious: Yes (Other)
  Sender: FDA-Public Use
  Company Number: NVSC2020US270800

PATIENT
  Sex: Male
  Weight: 46.71 kg

DRUGS (1)
  1. ILARIS [Suspect]
     Active Substance: CANAKINUMAB
     Indication: PRODUCT USED FOR UNKNOWN INDICATION
     Dosage: 80 MG, QMO (SUBCUTANEOUS  BENEATH THE SKIN)
     Route: 058

REACTIONS (1)
  - Condition aggravated [Unknown]
